FAERS Safety Report 6025504-X (Version None)
Quarter: 2008Q4

REPORT INFORMATION
  Report Type: 
  Country: None (occurrence: None)
  Receive Date: 20081222
  Receipt Date: 20081001
  Transmission Date: 20090506
  Serious: No
  Sender: FDA-Public Use
  Company Number: US-WYE-H06206208

PATIENT
  Age: 50 Year
  Sex: Female
  Weight: 72.64 kg

DRUGS (6)
  1. PRISTIQ [Suspect]
     Indication: HOT FLUSH
     Dosage: 50 MG  1X PER 1 DAY, ORAL
     Route: 048
     Dates: start: 20080930
  2. PRISTIQ [Suspect]
     Indication: STRESS
     Dosage: 50 MG  1X PER 1 DAY, ORAL
     Route: 048
     Dates: start: 20080930
  3. NORVASC [Concomitant]
  4. METOPROLOL TARTRATE [Concomitant]
  5. LOVAZA [Concomitant]
  6. FLAXSEED (FLAXSEED) [Concomitant]

REACTIONS (3)
  - BLOOD PRESSURE INCREASED [None]
  - FATIGUE [None]
  - NAUSEA [None]
